FAERS Safety Report 13578987 (Version 3)
Quarter: 2017Q2

REPORT INFORMATION
  Report Type: Spontaneous
  Country: US (occurrence: US)
  Receive Date: 20170524
  Receipt Date: 20170620
  Transmission Date: 20170830
  Serious: No
  Sender: FDA-Public Use
  Company Number: US-JAZZ-2017-US-004860

PATIENT
  Age: 17 Year
  Sex: Female

DRUGS (5)
  1. METHYLPHENIDATE. [Concomitant]
     Active Substance: METHYLPHENIDATE
  2. XYREM [Suspect]
     Active Substance: SODIUM OXYBATE
     Indication: CATAPLEXY
     Dosage: 2.75G, BID
     Route: 048
     Dates: start: 201704
  3. XYREM [Suspect]
     Active Substance: SODIUM OXYBATE
     Indication: NARCOLEPSY
     Dosage: 2.25G, BID
     Route: 048
     Dates: start: 201702, end: 201703
  4. MODAFINIL. [Suspect]
     Active Substance: MODAFINIL
     Indication: PRODUCT USED FOR UNKNOWN INDICATION
  5. VENLAFAXINE HCL [Concomitant]
     Active Substance: VENLAFAXINE HYDROCHLORIDE

REACTIONS (9)
  - Cardiovascular disorder [Unknown]
  - Malaise [Not Recovered/Not Resolved]
  - Arthropod sting [Unknown]
  - Cardiac murmur [Unknown]
  - Depression [Not Recovered/Not Resolved]
  - Dyspepsia [Unknown]
  - Palpitations [Not Recovered/Not Resolved]
  - Middle insomnia [Not Recovered/Not Resolved]
  - Sensory disturbance [Recovering/Resolving]

NARRATIVE: CASE EVENT DATE: 2017
